FAERS Safety Report 16279142 (Version 1)
Quarter: 2019Q2

REPORT INFORMATION
  Report Type: Spontaneous
  Country: SE (occurrence: SE)
  Receive Date: 20190506
  Receipt Date: 20190506
  Transmission Date: 20190711
  Serious: Yes (Hospitalization)
  Sender: FDA-Public Use
  Company Number: SE-TEVA-2019-SE-1045513

PATIENT
  Sex: Male

DRUGS (2)
  1. LOPERAMIDE [Suspect]
     Active Substance: LOPERAMIDE
     Dosage: ^30 ST^
     Route: 048
     Dates: start: 20170922, end: 20170922
  2. GABAPENTIN. [Suspect]
     Active Substance: GABAPENTIN
     Dosage: ^15 ST^
     Route: 048
     Dates: start: 20170922, end: 20170922

REACTIONS (4)
  - Fatigue [Unknown]
  - Intentional overdose [Unknown]
  - Drug abuse [Unknown]
  - Somnolence [Unknown]

NARRATIVE: CASE EVENT DATE: 20170922
